FAERS Safety Report 9290676 (Version 1)
Quarter: 2013Q2

REPORT INFORMATION
  Report Type: Spontaneous
  Country: US (occurrence: None)
  Receive Date: 20130514
  Receipt Date: 20130514
  Transmission Date: 20140414
  Serious: No
  Sender: FDA-Public Use
  Company Number: None

PATIENT
  Age: 27 Year
  Sex: Male

DRUGS (1)
  1. ESCITALOPRAM [Suspect]
     Dosage: (1-4 WEEKS)
     Route: 048
     Dates: start: 20120717

REACTIONS (3)
  - Tremor [None]
  - Tremor [None]
  - Product substitution issue [None]
